FAERS Safety Report 11757140 (Version 2)
Quarter: 2015Q4

REPORT INFORMATION
  Report Type: Spontaneous
  Country: CA (occurrence: CA)
  Receive Date: 20151120
  Receipt Date: 20151126
  Transmission Date: 20160304
  Serious: Yes (Other)
  Sender: FDA-Public Use
  Company Number: CA-ROCHE-1664131

PATIENT
  Age: 25 Year
  Sex: Male

DRUGS (8)
  1. PULMOZYME [Suspect]
     Active Substance: DORNASE ALFA
     Indication: CYSTIC FIBROSIS
     Route: 055
     Dates: start: 20151026, end: 20151102
  2. AZITHROMYCIN [Concomitant]
     Active Substance: AZITHROMYCIN ANHYDROUS
     Indication: CYSTIC FIBROSIS
     Route: 048
  3. CREON [Concomitant]
     Active Substance: PANCRELIPASE AMYLASE\PANCRELIPASE LIPASE\PANCRELIPASE PROTEASE
     Indication: CYSTIC FIBROSIS
     Route: 048
  4. VITAMIN E [Concomitant]
     Active Substance: .ALPHA.-TOCOPHEROL
     Route: 048
  5. PULMICORT TURBUHALER [Concomitant]
     Active Substance: BUDESONIDE
     Route: 055
  6. CAYSTON [Concomitant]
     Active Substance: AZTREONAM
     Route: 055
  7. VITAMIN K [Concomitant]
     Active Substance: PHYTONADIONE
     Route: 048
  8. VITAMIN A [Concomitant]
     Active Substance: VITAMIN A
     Route: 048

REACTIONS (2)
  - Haemoptysis [Recovered/Resolved]
  - Respiratory tract irritation [Unknown]

NARRATIVE: CASE EVENT DATE: 20151101
